FAERS Safety Report 13963245 (Version 9)
Quarter: 2019Q4

REPORT INFORMATION
  Report Type: Spontaneous
  Country: US (occurrence: US)
  Receive Date: 20170913
  Receipt Date: 20191009
  Transmission Date: 20200122
  Serious: Yes (Hospitalization, Other)
  Sender: FDA-Public Use
  Company Number: US-PFIZER INC-2017378113

PATIENT
  Age: 58 Year
  Sex: Female
  Weight: 86 kg

DRUGS (24)
  1. XALKORI [Suspect]
     Active Substance: CRIZOTINIB
     Dosage: 200 MG, 2X/DAY (BID)
     Route: 048
  2. PROTONIX [Concomitant]
     Active Substance: PANTOPRAZOLE SODIUM
     Dosage: 40 MG, 1X/DAY
     Route: 048
  3. IMODIUM [Concomitant]
     Active Substance: LOPERAMIDE HYDROCHLORIDE
     Dosage: 2 DF, AS NEEDED (FOUR TIMES DAILY AS NEEDED)
     Route: 048
  4. VITAMIN D3 [Concomitant]
     Active Substance: CHOLECALCIFEROL
     Dosage: 1000 IU, UNK
     Route: 048
  5. K-DUR [Concomitant]
     Active Substance: POTASSIUM CHLORIDE
     Dosage: 40 MEQ, 2X/DAY
     Route: 048
  6. KLOR-CON [Concomitant]
     Active Substance: POTASSIUM CHLORIDE
     Dosage: 40 MEQ, 2X/DAY
     Route: 048
  7. DEPAKOTE [Concomitant]
     Active Substance: DIVALPROEX SODIUM
     Indication: EPILEPSY
     Dosage: 250 MG, 2X/DAY
     Route: 048
  8. CARAFATE [Concomitant]
     Active Substance: SUCRALFATE
     Dosage: UNK
  9. KEPPRA [Concomitant]
     Active Substance: LEVETIRACETAM
     Dosage: 2250 MG, DAILY (2 TABLETS (1500MG) IN MORNING, 1 TABLET (750MG) IN EVENING.)
  10. KEPPRA [Concomitant]
     Active Substance: LEVETIRACETAM
     Dosage: 2250 MG, DAILY (2 TABLETS (1500 MG) IN MORNING, 1 TABLET (750 MG) IN EVENING)
  11. LASIX [Concomitant]
     Active Substance: FUROSEMIDE
     Dosage: 40 MG, 1X/DAY
     Route: 048
  12. FOLIC ACID. [Concomitant]
     Active Substance: FOLIC ACID
     Dosage: 1 MG, 1X/DAY
     Route: 048
  13. XALKORI [Suspect]
     Active Substance: CRIZOTINIB
     Dosage: 200 MG, UNK
     Route: 048
     Dates: end: 201906
  14. DEPAKOTE [Concomitant]
     Active Substance: DIVALPROEX SODIUM
     Dosage: 750 MG, 2X/DAY (TAKE 1 250 MG TABLET  TWICE DAILY (WITH 500 MG FOR 750 MG BID)
     Route: 048
  15. REQUIP [Concomitant]
     Active Substance: ROPINIROLE HYDROCHLORIDE
     Dosage: 0.25 MG, 1X/DAY (AT BEDTIME)
     Route: 048
  16. DYNACIN [MINOCYCLINE HYDROCHLORIDE] [Concomitant]
     Dosage: 100 MG, 1X/DAY
     Route: 048
  17. XALKORI [Suspect]
     Active Substance: CRIZOTINIB
     Indication: NON-SMALL CELL LUNG CANCER
     Dosage: 250 MG, 2X/DAY
     Route: 048
     Dates: start: 20170504, end: 20190520
  18. MINOCIN [Concomitant]
     Active Substance: MINOCYCLINE HYDROCHLORIDE
     Dosage: 100 MG, 1X/DAY
     Route: 048
  19. ALECENSA [Concomitant]
     Active Substance: ALECTINIB HYDROCHLORIDE
     Dosage: 600 MG, 2X/DAY
     Route: 048
  20. COMPAZINE [PROCHLORPERAZINE EDISYLATE] [Concomitant]
     Active Substance: PROCHLORPERAZINE EDISYLATE
     Dosage: 10 MG, AS NEEDED (EVERY 6 HOURS AS NEEDED FOR UP TO 7 DAYS)
     Route: 048
  21. VITAMIN D3 [Concomitant]
     Active Substance: CHOLECALCIFEROL
     Dosage: 1000 IU, 1X/DAY
     Route: 048
  22. REGLAN [Concomitant]
     Active Substance: METOCLOPRAMIDE HYDROCHLORIDE
     Dosage: 10 MG, 4X/DAY (EVERY 6 HOURS FOR 7 DAYS/TAKE 1 TABLET BY MOUTH EVERY 6 HOURS FOR 7 DAYS)
     Route: 048
  23. IMODIUM [Concomitant]
     Active Substance: LOPERAMIDE HYDROCHLORIDE
     Indication: DIARRHOEA
     Dosage: 4 MG, AS NEEDED
     Route: 048
  24. POTASSIUM CHLORIDE. [Concomitant]
     Active Substance: POTASSIUM CHLORIDE
     Dosage: 40 MEQ, 2X/DAY
     Route: 048

REACTIONS (12)
  - Nausea [Recovered/Resolved]
  - Hair texture abnormal [Unknown]
  - Lymphoedema [Unknown]
  - Alopecia [Recovering/Resolving]
  - Liver disorder [Unknown]
  - Vomiting [Recovered/Resolved]
  - Weight increased [Unknown]
  - Dry mouth [Unknown]
  - Diarrhoea [Recovered/Resolved]
  - Neoplasm progression [Unknown]
  - Abdominal discomfort [Recovered/Resolved]
  - Condition aggravated [Unknown]

NARRATIVE: CASE EVENT DATE: 201906
